FAERS Safety Report 5056129-0 (Version None)
Quarter: 2006Q3

REPORT INFORMATION
  Report Type: 
  Country: None (occurrence: None)
  Receive Date: 20060720
  Receipt Date: 20060712
  Transmission Date: 20061208
  Serious: Yes (Disabling)
  Sender: FDA-Public Use
  Company Number: US-GLAXOSMITHKLINE-A0612025A

PATIENT
  Age: 84 Year
  Sex: Male

DRUGS (1)
  1. VALTREX [Suspect]
     Indication: HERPES ZOSTER
     Dosage: 1G THREE TIMES PER DAY
     Route: 048

REACTIONS (2)
  - COORDINATION ABNORMAL [None]
  - DEAFNESS [None]
